FAERS Safety Report 24756604 (Version 2)
Quarter: 2025Q1

REPORT INFORMATION
  Report Type: Report from Study
  Country: US (occurrence: US)
  Receive Date: 20241220
  Receipt Date: 20250327
  Transmission Date: 20250408
  Serious: Yes (Hospitalization)
  Sender: UCB
  Company Number: US-UCBSA-2024065974

PATIENT
  Sex: Female

DRUGS (2)
  1. ROTIGOTINE [Suspect]
     Active Substance: ROTIGOTINE
     Indication: Restless legs syndrome
     Dosage: 4 MILLIGRAM, ONCE DAILY (QD)
     Route: 062
  2. ROTIGOTINE [Suspect]
     Active Substance: ROTIGOTINE
     Indication: Parkinson^s disease

REACTIONS (2)
  - Restless legs syndrome [Unknown]
  - Abdominal pain [Unknown]
